FAERS Safety Report 7269256-4 (Version None)
Quarter: 2011Q1

REPORT INFORMATION
  Report Type: 
  Country: None (occurrence: None)
  Receive Date: 20110202
  Receipt Date: 20110124
  Transmission Date: 20110831
  Serious: Yes (Life-Threatening)
  Sender: FDA-Public Use
  Company Number: DE-JNJFOC-20101106277

PATIENT
  Age: 72 Year
  Sex: Male

DRUGS (2)
  1. ABCIXIMAB [Suspect]
     Route: 042
  2. ABCIXIMAB [Suspect]
     Indication: ILL-DEFINED DISORDER
     Route: 022

REACTIONS (3)
  - HAEMODYNAMIC INSTABILITY [None]
  - CARDIAC ARREST [None]
  - INCORRECT ROUTE OF DRUG ADMINISTRATION [None]
